FAERS Safety Report 5490333-2 (Version None)
Quarter: 2007Q4

REPORT INFORMATION
  Report Type: 
  Country: None (occurrence: None)
  Receive Date: 20071017
  Receipt Date: 20071005
  Transmission Date: 20080405
  Serious: Yes (Death, Hospitalization)
  Sender: FDA-Public Use
  Company Number: GXKR2007US08630

PATIENT
  Age: 24 Year
  Sex: Male

DRUGS (10)
  1. PREDNISONE [Suspect]
     Indication: IMMUNOSUPPRESSANT DRUG THERAPY
     Dosage: 5 MG, QD,; 12.5 MG, QID,; 10 MG, QID,; 5 MG, QID,
  2. TACROLIMUS [Suspect]
     Indication: IMMUNOSUPPRESSANT DRUG THERAPY
     Dosage: 0.5 MG, QD,; 2 MG, BID,; 5 MG, QID,
  3. PROGRAF [Suspect]
     Indication: IMMUNOSUPPRESSANT DRUG THERAPY
     Dosage: 1 MG, BID,
  4. CELLCEPT [Suspect]
     Indication: IMMUNOSUPPRESSANT DRUG THERAPY
     Dosage: 5 MG, BID,; 250 MG, QID,; 250 MG, QID,; 250 MG, QID,
  5. SIROLIMUS(SIROLIMUS) [Suspect]
     Indication: IMMUNOSUPPRESSANT DRUG THERAPY
     Dosage: 1 MG, QID,
  6. DACLIZUMAB(DACLIZUMAB) [Suspect]
     Dosage: 1MG/KG EVERY 14 DAYS FOR 5 DOSES,
  7. LINEZOLID [Suspect]
     Dosage: INTRAVENOUS
     Route: 042
  8. VALGANCICLOVIR HCL [Suspect]
     Indication: CYTOMEGALOVIRUS COLITIS
  9. ACYCLOVIR [Concomitant]
  10. FLUCONAZOLE [Concomitant]

REACTIONS (25)
  - ACUTE PRERENAL FAILURE [None]
  - ASCITES [None]
  - ATELECTASIS [None]
  - BRONCHIAL POLYP [None]
  - BRONCHOPNEUMONIA [None]
  - CARDIAC CIRRHOSIS [None]
  - CLOSTRIDIUM DIFFICILE COLITIS [None]
  - CYTOMEGALOVIRUS COLITIS [None]
  - DERMATITIS HERPETIFORMIS [None]
  - DYSPNOEA [None]
  - ENDOCARDITIS [None]
  - ENTEROCOCCAL SEPSIS [None]
  - EPSTEIN-BARR VIRUS INFECTION [None]
  - FUNGAEMIA [None]
  - LEIOMYOSARCOMA [None]
  - MULTI-ORGAN FAILURE [None]
  - PANCYTOPENIA [None]
  - PYREXIA [None]
  - RENAL FAILURE [None]
  - RESPIRATORY FAILURE [None]
  - SEPSIS [None]
  - SPLENOMEGALY [None]
  - THERAPEUTIC EMBOLISATION [None]
  - TRACHEOSTOMY [None]
  - URINARY TRACT INFECTION [None]
